FAERS Safety Report 23173925 (Version 2)
Quarter: 2024Q1

REPORT INFORMATION
  Report Type: Report from Study
  Country: DE (occurrence: DE)
  Receive Date: 20231111
  Receipt Date: 20240314
  Transmission Date: 20240410
  Serious: Yes (Hospitalization, Other)
  Sender: FDA-Public Use
  Company Number: DE-PFM-2023-06313

PATIENT
  Sex: Male
  Weight: 77 kg

DRUGS (3)
  1. BRAFTOVI [Suspect]
     Active Substance: ENCORAFENIB
     Indication: Colorectal cancer
     Dosage: 300 MG DAILY
     Route: 048
     Dates: start: 20230404, end: 20230719
  2. CETUXIMAB [Suspect]
     Active Substance: CETUXIMAB
     Indication: Colorectal cancer
     Dosage: 250 MG/M2 WEEKLY(LIQUID DILUTION)
     Route: 042
     Dates: start: 20230404
  3. CETUXIMAB [Suspect]
     Active Substance: CETUXIMAB
     Dosage: (LIQUID DILUTION)
     Dates: start: 20230717, end: 20230718

REACTIONS (3)
  - Cholestasis [Recovered/Resolved]
  - Bile duct stenosis [Recovered/Resolved]
  - Device dislocation [Recovered/Resolved]

NARRATIVE: CASE EVENT DATE: 20230703
